FAERS Safety Report 7051220-1 (Version None)
Quarter: 2010Q4

REPORT INFORMATION
  Report Type: 
  Country: None (occurrence: None)
  Receive Date: 20101019
  Receipt Date: 20101006
  Transmission Date: 20110411
  Serious: Yes (Other)
  Sender: FDA-Public Use
  Company Number: PHHY2010AU66917

PATIENT
  Sex: Female

DRUGS (10)
  1. EXELON [Suspect]
     Dosage: 10 MG PATCH
     Route: 062
  2. ASPIRIN [Concomitant]
  3. EZETROL [Concomitant]
  4. TENORMIN [Concomitant]
  5. FOLIC ACID [Concomitant]
  6. THIAMINE HCL [Concomitant]
  7. GINGKO [Concomitant]
  8. LEXAPRO [Concomitant]
  9. VITAMIN D [Concomitant]
  10. MULTI-VITAMINS [Concomitant]

REACTIONS (5)
  - DIZZINESS [None]
  - FALL [None]
  - FATIGUE [None]
  - HEART RATE ABNORMAL [None]
  - HEART RATE IRREGULAR [None]
